FAERS Safety Report 23714002 (Version 1)
Quarter: 2024Q2

REPORT INFORMATION
  Report Type: Spontaneous
  Country: US (occurrence: US)
  Receive Date: 20240405
  Receipt Date: 20240405
  Transmission Date: 20240716
  Serious: No
  Sender: FDA-Public Use
  Company Number: US-E2BLSMVVAL-SPO/USA/24/0005034

PATIENT
  Age: 7 Year
  Sex: Male
  Weight: 21.68 kg

DRUGS (6)
  1. JAVYGTOR [Suspect]
     Active Substance: SAPROPTERIN DIHYDROCHLORIDE
     Indication: Hypersensitivity
     Dosage: 400 MG BY MOUTH ORAL DAILY
     Route: 048
  2. VITAMIN D-400 10 MCG TABLET [Concomitant]
  3. MELATONIN 5 MG TAB CHEW [Concomitant]
  4. CONCERTA 18 MG TAB ER 24 [Concomitant]
  5. KIDS MULTIVITAMIN-MINIRALS [Concomitant]
  6. COMPLETE AMINO ACID FORMULA MIX [Concomitant]

REACTIONS (1)
  - Hypersensitivity [Unknown]
